FAERS Safety Report 8817189 (Version 2)
Quarter: 2012Q4

REPORT INFORMATION
  Report Type: 
  Country: US (occurrence: US)
  Receive Date: 20121001
  Receipt Date: 20121025
  Transmission Date: 20130627
  Serious: Yes (Other)
  Sender: FDA-Public Use
  Company Number: US-PFIZER INC-2012238043

PATIENT
  Age: 64 Year
  Sex: Female
  Weight: 123 kg

DRUGS (2)
  1. DETROL LA [Suspect]
     Indication: INCONTINENCE
     Dosage: 4 mg, 1x/day
     Route: 048
  2. WARFARIN [Concomitant]
     Dosage: UNK

REACTIONS (2)
  - Upper limb fracture [Recovering/Resolving]
  - Pain [Unknown]
